FAERS Safety Report 9178427 (Version 1)
Quarter: 2012Q4

REPORT INFORMATION
  Report Type: 
  Country: US (occurrence: US)
  Receive Date: 20121029
  Receipt Date: 20121029
  Transmission Date: 20130627
  Serious: Yes (Other)
  Sender: FDA-Public Use
  Company Number: US-PFIZER INC-2012265986

PATIENT
  Age: 44 Year
  Sex: Male

DRUGS (2)
  1. XALATAN [Suspect]
     Indication: INTRAOCULAR PRESSURE
     Dosage: UNK (one drop in each eyes), 1x/day
     Route: 047
     Dates: start: 2007
  2. XALATAN [Suspect]
     Indication: OPEN ANGLE GLAUCOMA
     Dosage: UNK
     Route: 047
     Dates: end: 2010

REACTIONS (2)
  - Diabetes mellitus [Unknown]
  - Erythema of eyelid [Unknown]
